FAERS Safety Report 7103269-8 (Version None)
Quarter: 2010Q4

REPORT INFORMATION
  Report Type: 
  Country: None (occurrence: None)
  Receive Date: 20101115
  Receipt Date: 20100107
  Transmission Date: 20110411
  Serious: No
  Sender: FDA-Public Use
  Company Number: US-KINGPHARMUSA00001-K201000021

PATIENT
  Age: 47 Year
  Sex: Female
  Weight: 97.506 kg

DRUGS (3)
  1. LEVOXYL [Suspect]
     Dosage: 75 MCG, QD
     Route: 048
     Dates: start: 20100328
  2. CYTOMEL [Suspect]
     Indication: TRI-IODOTHYRONINE DECREASED
     Dosage: 5 MCG, UNK
  3. CYTOMEL [Suspect]
     Dosage: 1/4 OF A 25 MCG TABLET, QD

REACTIONS (4)
  - ABDOMINAL DISCOMFORT [None]
  - DRUG EFFECT DECREASED [None]
  - HEADACHE [None]
  - HYPERSENSITIVITY [None]
